FAERS Safety Report 24419998 (Version 2)
Quarter: 2024Q4

REPORT INFORMATION
  Report Type: Report from Study
  Country: US (occurrence: US)
  Receive Date: 20241010
  Receipt Date: 20241018
  Transmission Date: 20250114
  Serious: No
  Sender: ROCHE
  Company Number: US-ROCHE-3513904

PATIENT
  Age: 45 Year
  Sex: Male

DRUGS (2)
  1. CATHFLO ACTIVASE [Suspect]
     Active Substance: ALTEPLASE
     Indication: Infectious pleural effusion
     Dosage: 5 VIAL, 2MG X 5= 10MG
     Route: 065
  2. SODIUM CHLORIDE [Concomitant]
     Active Substance: SODIUM CHLORIDE

REACTIONS (2)
  - Off label use [Unknown]
  - No adverse event [Unknown]
